FAERS Safety Report 4359230-X (Version None)
Quarter: 2004Q2

REPORT INFORMATION
  Report Type: 
  Country: None (occurrence: None)
  Receive Date: 20040517
  Receipt Date: 20040517
  Transmission Date: 20050107
  Serious: Yes (Hospitalization)
  Sender: FDA-Public Use
  Company Number: None

PATIENT
  Age: 65 Year
  Sex: Female

DRUGS (6)
  1. ETODOLAC [Suspect]
     Indication: PAIN
     Dosage: 300 MG BID
     Dates: start: 20031222
  2. CIPRO [Concomitant]
  3. DIPHENHYDRAMINE HCL [Concomitant]
  4. GUAIFENESIN [Concomitant]
  5. DILTIAZEM [Concomitant]
  6. METFORMIN HCL [Concomitant]

REACTIONS (1)
  - GASTROINTESTINAL HAEMORRHAGE [None]
